FAERS Safety Report 21124048 (Version 1)
Quarter: 2022Q3

REPORT INFORMATION
  Report Type: Spontaneous
  Country: US (occurrence: US)
  Receive Date: 20220725
  Receipt Date: 20220725
  Transmission Date: 20221027
  Serious: Yes (Other)
  Sender: FDA-Public Use
  Company Number: US-CELLTRION INC.-2022US011641

PATIENT

DRUGS (2)
  1. INFLIXIMAB [Suspect]
     Active Substance: INFLIXIMAB
     Indication: Immunosuppression
     Dosage: UNK
  2. PREDNISONE [Suspect]
     Active Substance: PREDNISONE
     Indication: Immune-mediated adverse reaction
     Dosage: MEDIAN STARTING SS DOSE WAS 100MG OF A PREDNISONE EQUIVALENT

REACTIONS (6)
  - Listeriosis [Recovered/Resolved]
  - Pneumocystis jirovecii pneumonia [Recovered/Resolved]
  - Clostridium difficile infection [Recovered/Resolved]
  - Cellulitis [Recovered/Resolved]
  - Oral candidiasis [Recovered/Resolved]
  - Off label use [Unknown]
